FAERS Safety Report 8370134-8 (Version None)
Quarter: 2012Q2

REPORT INFORMATION
  Report Type: 
  Country: None (occurrence: None)
  Receive Date: 20120518
  Receipt Date: 20120510
  Transmission Date: 20120825
  Serious: Yes (Other)
  Sender: FDA-Public Use
  Company Number: US-JNJFOC-20120512947

PATIENT

DRUGS (6)
  1. DOXORUBICIN HCL [Suspect]
     Route: 042
  2. GEMCITABINE [Suspect]
     Indication: RENAL CELL CARCINOMA
     Route: 042
  3. NEUPOGEN [Concomitant]
     Route: 065
  4. GEMCITABINE [Suspect]
     Dosage: DOSE REDUCED
     Route: 042
  5. DOXORUBICIN HCL [Suspect]
     Indication: RENAL CELL CARCINOMA
     Dosage: DOSE REDUCED
     Route: 042
  6. PEGFILGRASTIM [Concomitant]
     Route: 065

REACTIONS (2)
  - MUSCULOSKELETAL CHEST PAIN [None]
  - OFF LABEL USE [None]
